FAERS Safety Report 20921630 (Version 1)
Quarter: 2022Q2

REPORT INFORMATION
  Report Type: Report from Study
  Country: US (occurrence: US)
  Receive Date: 20220606
  Receipt Date: 20220606
  Transmission Date: 20220720
  Serious: Yes (Life-Threatening, Hospitalization, Other)
  Sender: FDA-Public Use
  Company Number: US-GILEAD-2022-0583833

PATIENT
  Age: 62 Year
  Sex: Male
  Weight: 88.5 kg

DRUGS (27)
  1. REMDESIVIR [Suspect]
     Active Substance: REMDESIVIR
     Indication: COVID-19
     Dosage: 100 MG, ONCE
     Route: 042
     Dates: start: 20211130, end: 20211130
  2. CYCLOSPORINE [Suspect]
     Active Substance: CYCLOSPORINE
     Indication: COVID-19
     Dosage: 224 MG
     Route: 048
     Dates: start: 20211130, end: 20211204
  3. ACETYLCYSTEINE [Concomitant]
     Active Substance: ACETYLCYSTEINE
     Dosage: 4 ML, Q4H, NEB,
     Dates: start: 20220117, end: 20220131
  4. ARFORMOTEROL [Concomitant]
     Active Substance: ARFORMOTEROL
     Dosage: 15 ?G, BID, NEB,
     Dates: start: 20220114, end: 20220131
  5. ASCORBIC ACID [Concomitant]
     Active Substance: ASCORBIC ACID
     Dosage: 1000 MG, BID, PO,
     Dates: start: 20211127, end: 20220128
  6. BUDESONIDE [Concomitant]
     Active Substance: BUDESONIDE
     Dosage: 0.5 MG, BID, NEB,
     Dates: start: 20220114, end: 20220131
  7. DEXAMETHASONE [Concomitant]
     Active Substance: DEXAMETHASONE
     Dosage: {8 MG, QD
     Route: 042
  8. DEXAMETHASONE [Concomitant]
     Active Substance: DEXAMETHASONE
     Dosage: 4 MG/ML BID IV
     Route: 042
     Dates: start: 20211127, end: 20211206
  9. DEXAMETHASONE [Concomitant]
     Active Substance: DEXAMETHASONE
     Dosage: 6 MG/ML Q8H IV
     Route: 042
     Dates: start: 20211206, end: 20211213
  10. METRONIDAZOLE [Concomitant]
     Active Substance: METRONIDAZOLE
     Indication: Respiratory tract infection
     Dosage: 500 MG Q8H IV
     Dates: start: 20220124, end: 20220127
  11. ACETAMINOPHEN [Concomitant]
     Active Substance: ACETAMINOPHEN
     Indication: Pain
     Dosage: 650 MG ACETAMINOPHEN QID AS NEEDED PO
  12. ACETAMINOPHEN [Concomitant]
     Active Substance: ACETAMINOPHEN
     Indication: Pyrexia
  13. ALBUTEROL [Concomitant]
     Active Substance: ALBUTEROL
     Indication: Wheezing
     Dosage: 2.5 MG/0.5 ML Q4H AS NEEDED INH/NEB
  14. ALBUTEROL [Concomitant]
     Active Substance: ALBUTEROL
     Indication: Dyspnoea
  15. AZITHROMYCIN [Concomitant]
     Active Substance: AZITHROMYCIN
     Dosage: 500 MG QD IV;
  16. BENZONATATE [Concomitant]
     Active Substance: BENZONATATE
     Indication: Cough
     Dosage: 20 MG Q8H AS NEEDED PO
  17. CHOLECALCIFEROL [Concomitant]
     Active Substance: CHOLECALCIFEROL
     Dosage: 5000 UNITS CHOLECALCIFEROL QD
     Route: 048
     Dates: start: 20211127, end: 20220128
  18. METHYLPREDNISOLONE [Concomitant]
     Active Substance: METHYLPREDNISOLONE
     Indication: COVID-19
     Dosage: 20 MG BID IV
     Dates: start: 20220114, end: 20220127
  19. CEFEPIME [Concomitant]
     Active Substance: CEFEPIME HYDROCHLORIDE
     Dosage: 2 G Q8H IV
     Dates: start: 20220122, end: 20220128
  20. VANCOMYCIN [Concomitant]
     Active Substance: VANCOMYCIN
     Indication: Respiratory tract infection
     Dosage: 1500 MG ONCE IV
     Dates: start: 20220121, end: 20220121
  21. VANCOMYCIN [Concomitant]
     Active Substance: VANCOMYCIN
     Dosage: 1000 MG Q12H IV
     Dates: start: 20220123, end: 20220128
  22. ALBUTEROL\IPRATROPIUM [Concomitant]
     Active Substance: ALBUTEROL\IPRATROPIUM
     Dosage: 3 ML Q4H AS NEEDED INH/NEB FOR DYSPNEA
     Dates: start: 20220117, end: 20220203
  23. CEFTRIAXONE [Concomitant]
     Active Substance: CEFTRIAXONE
     Dosage: 2 G QD IV
     Dates: start: 20211111, end: 20211128
  24. DEXTROMETHORPHAN\GUAIFENESIN [Concomitant]
     Active Substance: DEXTROMETHORPHAN\GUAIFENESIN
     Indication: Cough
     Dosage: 5 ML Q4H/AS NEEDED PO
  25. TOCILIZUMAB [Concomitant]
     Active Substance: TOCILIZUMAB
     Dosage: 720 MG QD IV
     Dates: start: 20211127, end: 20211201
  26. ZINC SULFATE [Concomitant]
     Active Substance: ZINC SULFATE
     Dosage: 220 MG QD PO;
  27. REMDESIVIR [Concomitant]
     Active Substance: REMDESIVIR
     Dosage: 200 MG, QD
     Route: 042
     Dates: start: 20211126, end: 20211126

REACTIONS (1)
  - Cardiac arrest [Recovered/Resolved]

NARRATIVE: CASE EVENT DATE: 20220124
